FAERS Safety Report 14183292 (Version 3)
Quarter: 2017Q4

REPORT INFORMATION
  Report Type: Spontaneous
  Country: US (occurrence: US)
  Receive Date: 20171113
  Receipt Date: 20171222
  Transmission Date: 20180321
  Serious: Yes (Other)
  Sender: FDA-Public Use
  Company Number: US-JNJFOC-20171106450

PATIENT
  Sex: Female

DRUGS (2)
  1. VALPROIC ACID. [Suspect]
     Active Substance: VALPROIC ACID
     Indication: PRODUCT USED FOR UNKNOWN INDICATION
     Route: 065
  2. HALDOL [Suspect]
     Active Substance: HALOPERIDOL
     Indication: PRODUCT USED FOR UNKNOWN INDICATION
     Route: 065

REACTIONS (11)
  - Rash [Unknown]
  - Blindness [Unknown]
  - Urticaria [Unknown]
  - Liver injury [Unknown]
  - Adverse event [Unknown]
  - Medication error [Unknown]
  - Seizure [Unknown]
  - Abdominal distension [Unknown]
  - Cardiac disorder [Unknown]
  - Cardiac murmur [Unknown]
  - Sinus disorder [Unknown]
